FAERS Safety Report 10182020 (Version 1)
Quarter: 2014Q2

REPORT INFORMATION
  Report Type: Spontaneous
  Country: CA (occurrence: CA)
  Receive Date: 20140519
  Receipt Date: 20140519
  Transmission Date: 20141212
  Serious: Yes (Hospitalization, Disabling)
  Sender: FDA-Public Use
  Company Number: CA-009507513-1405CAN008002

PATIENT
  Age: 62 Year
  Sex: 0
  Weight: 83 kg

DRUGS (6)
  1. VICTRELIS TRIPLE [Suspect]
     Dosage: BOCEPREVIR CAPSULE 200 MG
     Route: 048
  2. VICTRELIS TRIPLE [Suspect]
     Dosage: RIBAVIRIN CAPSULE 200 MG
     Route: 048
  3. VICTRELIS TRIPLE [Suspect]
     Dosage: PEGINTERFERON ALFA-2B POWDER FOR SOLUTION
     Route: 065
  4. GLYBURIDE [Concomitant]
     Route: 048
  5. METFORMIN [Concomitant]
     Route: 048
  6. RANITIDINE [Concomitant]
     Route: 065

REACTIONS (2)
  - Cardiac failure congestive [Unknown]
  - Cardiomyopathy [Unknown]
